FAERS Safety Report 5226048-5 (Version None)
Quarter: 2007Q1

REPORT INFORMATION
  Report Type: 
  Country: None (occurrence: None)
  Receive Date: 20070129
  Receipt Date: 20070115
  Transmission Date: 20070707
  Serious: Yes (Life-Threatening, Hospitalization)
  Sender: FDA-Public Use
  Company Number: POMP-10930

PATIENT
  Age: 9 Month
  Sex: Female
  Weight: 6.35 kg

DRUGS (5)
  1. MYOZYME [Suspect]
     Indication: GLYCOGEN STORAGE DISEASE TYPE II
     Dosage: 20 MG/KG IV
     Route: 042
     Dates: start: 20060927
  2. PROPRANOLOL [Concomitant]
  3. FERROUS SULFATE TAB [Concomitant]
  4. HYDROCORTISONE [Concomitant]
  5. HYDROXYZINE [Concomitant]

REACTIONS (13)
  - ASPIRATION [None]
  - BRADYCARDIA [None]
  - CHOKING [None]
  - COUGH [None]
  - DYSPHAGIA [None]
  - FATIGUE [None]
  - HAEMATOCRIT DECREASED [None]
  - HEART RATE DECREASED [None]
  - HYPOTENSION [None]
  - LEUKOCYTOSIS [None]
  - PLATELET COUNT DECREASED [None]
  - RESPIRATORY ARREST [None]
  - SYNCOPE VASOVAGAL [None]
